FAERS Safety Report 9398749 (Version 1)
Quarter: 2013Q3

REPORT INFORMATION
  Report Type: Report from Study
  Country: US (occurrence: US)
  Receive Date: 20130712
  Receipt Date: 20130712
  Transmission Date: 20140515
  Serious: Yes (Hospitalization, Other)
  Sender: FDA-Public Use
  Company Number: US-009507513-1307USA002287

PATIENT
  Age: 16 Year
  Sex: Male
  Weight: 98.7 kg

DRUGS (7)
  1. ELSPAR [Suspect]
     Indication: B PRECURSOR TYPE ACUTE LEUKAEMIA
     Dosage: 2500 IU/M2, CYCLIC IM OR IV OVER 1-2 HOURS, ON DAYS 2, 5, 15, AND 22
     Dates: start: 20130601, end: 20130603
  2. PREDNISONE [Suspect]
     Indication: B PRECURSOR TYPE ACUTE LEUKAEMIA
     Dosage: 20 MG/M2, CYCLIC ON DAYS 1-25
     Route: 048
     Dates: start: 20130531, end: 20130620
  3. DOXORUBICIN [Suspect]
     Indication: B PRECURSOR TYPE ACUTE LEUKAEMIA
     Dosage: 60 MG/M2, CYCLIC OVER 15 MIN ON DAY 1
     Route: 042
     Dates: start: 20130531, end: 20130531
  4. METHOTREXATE [Suspect]
     Indication: B PRECURSOR TYPE ACUTE LEUKAEMIA
     Dosage: 5-15 MG (BASED ON AGE), CYCLIC N DAYS 15 AND 29 (CENTRAL NERVOUS SYSTEM (CNS) NEGATIVE) PATIENTS)
     Route: 037
     Dates: start: 20130614, end: 20130614
  5. VELCADE [Suspect]
     Indication: B PRECURSOR TYPE ACUTE LEUKAEMIA
     Dosage: OVER 3-5 SECONDS, ON DAYS 1, 4, 5 AND 11
     Route: 042
     Dates: start: 20130531, end: 20130610
  6. CYTARABINE [Suspect]
     Indication: B PRECURSOR TYPE ACUTE LEUKAEMIA
     Dosage: 30- 70 MG (BASED ON AGE) ON DAY 1
     Route: 037
     Dates: start: 20130531, end: 20130531
  7. VINCRISTINE SULFATE [Suspect]
     Indication: B PRECURSOR TYPE ACUTE LEUKAEMIA
     Dosage: 1.5 MG/M2, CYCLE OVER 1MIN, ON DAYS 1, 5, 15, AND 22
     Route: 042
     Dates: start: 20130531, end: 20130614

REACTIONS (8)
  - Febrile neutropenia [Recovered/Resolved]
  - Pneumonitis [Not Recovered/Not Resolved]
  - Atelectasis [Not Recovered/Not Resolved]
  - Pancreatitis [Recovering/Resolving]
  - Hyperkalaemia [Recovered/Resolved]
  - Hyponatraemia [Recovered/Resolved]
  - Hyperglycaemia [Recovered/Resolved]
  - Epistaxis [Not Recovered/Not Resolved]
